FAERS Safety Report 15109793 (Version 1)
Quarter: 2018Q3

REPORT INFORMATION
  Report Type: Spontaneous
  Country: US (occurrence: US)
  Receive Date: 20180705
  Receipt Date: 20180705
  Transmission Date: 20181010
  Serious: No
  Sender: FDA-Public Use
  Company Number: US-PFIZER INC-2018265858

PATIENT
  Age: 36 Year
  Sex: Female
  Weight: 68.27 kg

DRUGS (2)
  1. ZOLOFT [Suspect]
     Active Substance: SERTRALINE HYDROCHLORIDE
     Indication: MOOD ALTERED
     Dosage: 25 MG, UNK
     Dates: start: 2017
  2. ZOLOFT [Suspect]
     Active Substance: SERTRALINE HYDROCHLORIDE
     Dosage: 75 MG, 1X/DAY (50 MG, TAKE 1.5 TABLETS BY MOUTH ONCE DAILY AT NIGHT TO EQUAL 75MG)
     Dates: start: 2018

REACTIONS (2)
  - Product use in unapproved indication [Unknown]
  - Vulvovaginal discomfort [Not Recovered/Not Resolved]

NARRATIVE: CASE EVENT DATE: 2017
